FAERS Safety Report 10237359 (Version 1)
Quarter: 2014Q2

REPORT INFORMATION
  Report Type: Spontaneous
  Country: US (occurrence: US)
  Receive Date: 20140613
  Receipt Date: 20140613
  Transmission Date: 20141212
  Serious: Yes (Other)
  Sender: FDA-Public Use
  Company Number: PHEH2014US011874

PATIENT
  Sex: 0

DRUGS (1)
  1. GILENYA [Suspect]

REACTIONS (1)
  - Diabetic retinopathy [Unknown]
